FAERS Safety Report 5830520-4 (Version None)
Quarter: 2008Q3

REPORT INFORMATION
  Report Type: 
  Country: None (occurrence: None)
  Receive Date: 20080801
  Receipt Date: 20070621
  Transmission Date: 20090109
  Serious: No
  Sender: FDA-Public Use
  Company Number: US-BRISTOL-MYERS SQUIBB COMPANY-13822465

PATIENT
  Sex: Male
  Weight: 90 kg

DRUGS (8)
  1. COUMADIN [Suspect]
     Route: 048
  2. COUMADIN [Suspect]
     Route: 048
  3. PLAVIX [Suspect]
     Route: 048
  4. ASPIRIN [Concomitant]
  5. NADOLOL MARKER [Concomitant]
  6. LISINOPRIL [Concomitant]
  7. TRIAMTERENE + CYCLOTHIAZIDE [Concomitant]
  8. LASIX [Concomitant]

REACTIONS (1)
  - HAEMORRHAGE [None]
